FAERS Safety Report 11937049 (Version 3)
Quarter: 2016Q2

REPORT INFORMATION
  Report Type: Report from Study
  Country: PT (occurrence: PT)
  Receive Date: 20160121
  Receipt Date: 20160519
  Transmission Date: 20160815
  Serious: Yes (Death, Hospitalization)
  Sender: FDA-Public Use
  Company Number: PT-ROCHE-1697727

PATIENT
  Age: 51 Year
  Sex: Male

DRUGS (4)
  1. COBIMETINIB [Suspect]
     Active Substance: COBIMETINIB
     Indication: METASTATIC MALIGNANT MELANOMA
     Route: 065
     Dates: start: 20151215, end: 20151221
  2. COBIMETINIB [Suspect]
     Active Substance: COBIMETINIB
     Route: 065
     Dates: start: 20151229
  3. VEMURAFENIB [Suspect]
     Active Substance: VEMURAFENIB
     Route: 065
     Dates: start: 20151229
  4. VEMURAFENIB [Suspect]
     Active Substance: VEMURAFENIB
     Indication: METASTATIC MALIGNANT MELANOMA
     Route: 065
     Dates: start: 20141023, end: 20151221

REACTIONS (4)
  - Pyrexia [Recovered/Resolved]
  - Pneumonia pneumococcal [Fatal]
  - Respiratory disorder [Unknown]
  - Diarrhoea [Recovered/Resolved]

NARRATIVE: CASE EVENT DATE: 20160101
